FAERS Safety Report 8227771-0 (Version None)
Quarter: 2012Q1

REPORT INFORMATION
  Report Type: 
  Country: None (occurrence: None)
  Receive Date: 20120322
  Receipt Date: 20120313
  Transmission Date: 20120608
  Serious: No
  Sender: FDA-Public Use
  Company Number: US-B.I. PHARMACEUTICALS,INC./RIDGEFIELD-2012-BP-01913BP

PATIENT
  Sex: Male

DRUGS (14)
  1. FLOMAX [Concomitant]
     Indication: DYSURIA
  2. NORVASC [Concomitant]
     Indication: BLOOD PRESSURE
     Dosage: 10 MG
     Route: 048
  3. SYNTHROID [Concomitant]
     Indication: HYPOTHYROIDISM
     Dosage: 125 MCG
     Route: 048
  4. LIPITOR [Concomitant]
     Indication: BLOOD CHOLESTEROL INCREASED
     Dosage: 40 MG
     Route: 048
  5. ATENOLOL [Concomitant]
     Indication: CARDIAC DISORDER
  6. SAW PALMETTO [Concomitant]
     Indication: VITAMIN SUPPLEMENTATION
  7. AVODART [Concomitant]
     Indication: PROSTATIC DISORDER
  8. FISH OIL [Concomitant]
     Indication: VITAMIN SUPPLEMENTATION
  9. PRADAXA [Suspect]
     Indication: ATRIAL FIBRILLATION
     Dosage: 300 MG
     Route: 048
     Dates: start: 20111101
  10. GLUCOSAMINE CHONDROITIN [Concomitant]
     Indication: VITAMIN SUPPLEMENTATION
  11. FLOMAX [Concomitant]
     Indication: PROSTATIC DISORDER
     Dosage: 0.4 MG
     Route: 048
  12. NORVASC [Concomitant]
     Indication: ATRIAL FIBRILLATION
  13. MULTI-VITAMIN [Concomitant]
     Indication: VITAMIN SUPPLEMENTATION
  14. VITAMIN D [Concomitant]
     Indication: VITAMIN SUPPLEMENTATION

REACTIONS (2)
  - DIZZINESS [None]
  - DYSPEPSIA [None]
